FAERS Safety Report 12909081 (Version 1)
Quarter: 2016Q4

REPORT INFORMATION
  Report Type: Spontaneous
  Country: US (occurrence: US)
  Receive Date: 20161103
  Receipt Date: 20161103
  Transmission Date: 20170207
  Serious: No
  Sender: FDA-Public Use
  Company Number: US-JAZZ-2016-US-016945

PATIENT
  Sex: Female

DRUGS (29)
  1. TRAZODONE HYDROCHLORIDE. [Concomitant]
     Active Substance: TRAZODONE HYDROCHLORIDE
  2. SYNTHROID [Concomitant]
     Active Substance: LEVOTHYROXINE SODIUM
  3. TOPAMAX [Concomitant]
     Active Substance: TOPIRAMATE
  4. LAMICTAL [Concomitant]
     Active Substance: LAMOTRIGINE
  5. LAMOTRIGINE. [Concomitant]
     Active Substance: LAMOTRIGINE
  6. XYREM [Suspect]
     Active Substance: SODIUM OXYBATE
     Dosage: 3.75 G, BID
     Route: 048
     Dates: start: 200909, end: 200910
  7. AMBIEN [Concomitant]
     Active Substance: ZOLPIDEM TARTRATE
  8. IMITREX [Concomitant]
     Active Substance: SUMATRIPTAN SUCCINATE
  9. PROZAC [Concomitant]
     Active Substance: FLUOXETINE HYDROCHLORIDE
  10. FISH OIL [Concomitant]
     Active Substance: FISH OIL
  11. MULTIVITAMIN [Concomitant]
     Active Substance: VITAMINS
  12. PROMETHAZINE [Concomitant]
     Active Substance: PROMETHAZINE\PROMETHAZINE HYDROCHLORIDE
  13. ONDANSETRON HCL [Concomitant]
     Active Substance: ONDANSETRON HYDROCHLORIDE
  14. XYREM [Suspect]
     Active Substance: SODIUM OXYBATE
     Indication: SLEEP DISORDER
     Dosage: 2.25 G, BID
     Route: 048
     Dates: start: 200303, end: 2003
  15. ASPIRIN. [Concomitant]
     Active Substance: ASPIRIN
  16. BENZTROPINE MESILATE [Concomitant]
     Active Substance: BENZTROPINE MESYLATE
  17. CONCERTA [Concomitant]
     Active Substance: METHYLPHENIDATE HYDROCHLORIDE
  18. DIAZEPAM. [Concomitant]
     Active Substance: DIAZEPAM
  19. LORAZEPAM. [Concomitant]
     Active Substance: LORAZEPAM
  20. OMEPRAZOLE. [Concomitant]
     Active Substance: OMEPRAZOLE
  21. PROMETRIUM [Concomitant]
     Active Substance: PROGESTERONE
  22. SUMATRIPTAN SUCCINATE. [Concomitant]
     Active Substance: SUMATRIPTAN SUCCINATE
  23. ZYPREXA [Concomitant]
     Active Substance: OLANZAPINE
  24. XYREM [Suspect]
     Active Substance: SODIUM OXYBATE
     Dosage: 3 G, BID
     Route: 048
     Dates: start: 200907, end: 200909
  25. XYREM [Suspect]
     Active Substance: SODIUM OXYBATE
     Dosage: 4.5 G, BID
     Route: 048
     Dates: start: 200910
  26. ATENOLOL. [Concomitant]
     Active Substance: ATENOLOL
  27. METFORMIN HCL [Concomitant]
     Active Substance: METFORMIN HYDROCHLORIDE
  28. OLANZAPINE. [Concomitant]
     Active Substance: OLANZAPINE
  29. VITAMIN B12 [Concomitant]
     Active Substance: CYANOCOBALAMIN

REACTIONS (1)
  - Gastrooesophageal reflux disease [Unknown]

NARRATIVE: CASE EVENT DATE: 2013
